FAERS Safety Report 14892250 (Version 1)
Quarter: 2018Q2

REPORT INFORMATION
  Report Type: Spontaneous
  Country: US (occurrence: US)
  Receive Date: 20180514
  Receipt Date: 20180514
  Transmission Date: 20180711
  Serious: No
  Sender: FDA-Public Use
  Company Number: US-UNITED THERAPEUTICS-UNT-2017-017891

PATIENT
  Sex: Female

DRUGS (4)
  1. REMODULIN [Suspect]
     Active Substance: TREPROSTINIL
     Dosage: 0.0215 ?G/KG, CONTINUING
     Route: 058
  2. REMODULIN [Suspect]
     Active Substance: TREPROSTINIL
     Dosage: 0.02 ?G/KG, CONTINUING
     Route: 058
  3. REMODULIN [Suspect]
     Active Substance: TREPROSTINIL
     Indication: PULMONARY ARTERIAL HYPERTENSION
     Dosage: 0.0057 ?G/KG, CONTINUING
     Route: 058
     Dates: start: 20171125
  4. REMODULIN [Suspect]
     Active Substance: TREPROSTINIL
     Dosage: 0.0162 ?G/KG, CONTINUING
     Route: 058

REACTIONS (12)
  - Infusion site irritation [Unknown]
  - Infusion site warmth [Unknown]
  - Nausea [Not Recovered/Not Resolved]
  - Infusion site pain [Not Recovered/Not Resolved]
  - Chest pain [Unknown]
  - Heart rate irregular [Unknown]
  - Diarrhoea [Not Recovered/Not Resolved]
  - Infusion site swelling [Unknown]
  - Restlessness [Not Recovered/Not Resolved]
  - Asthenia [Unknown]
  - Infusion site erythema [Unknown]
  - Back pain [Unknown]

NARRATIVE: CASE EVENT DATE: 2017
